FAERS Safety Report 13693638 (Version 1)
Quarter: 2017Q2

REPORT INFORMATION
  Report Type: Spontaneous
  Country: CA (occurrence: CA)
  Receive Date: 20170627
  Receipt Date: 20170627
  Transmission Date: 20170830
  Serious: Yes (Hospitalization, Other)
  Sender: FDA-Public Use
  Company Number: CA-TEVA-780897ACC

PATIENT
  Sex: Female
  Weight: 6 kg

DRUGS (1)
  1. SOTALOL. [Suspect]
     Active Substance: SOTALOL
     Indication: HAEMANGIOMA
     Route: 048

REACTIONS (1)
  - Hypoglycaemia [Recovered/Resolved]
